FAERS Safety Report 5519960-0 (Version None)
Quarter: 2007Q4

REPORT INFORMATION
  Report Type: 
  Country: None (occurrence: None)
  Receive Date: 20071116
  Receipt Date: 20070223
  Transmission Date: 20080405
  Serious: No
  Sender: FDA-Public Use
  Company Number: US-BRISTOL-MYERS SQUIBB COMPANY-13691506

PATIENT
  Sex: Male
  Weight: 73 kg

DRUGS (11)
  1. CHOLESTYRAMINE+ASPARTAME [Suspect]
     Indication: IRRITABLE BOWEL SYNDROME
  2. TOPAMAX [Concomitant]
  3. AMIDRINE [Concomitant]
  4. BENTYL [Concomitant]
  5. NADOLOL [Concomitant]
  6. BACLOFEN [Concomitant]
  7. ZANTAC [Concomitant]
  8. VITAMIN [Concomitant]
  9. ALEVE [Concomitant]
  10. AXERT [Concomitant]
  11. TALWIN [Concomitant]

REACTIONS (1)
  - HEADACHE [None]
